FAERS Safety Report 14817267 (Version 1)
Quarter: 2018Q2

REPORT INFORMATION
  Report Type: Spontaneous
  Country: US (occurrence: US)
  Receive Date: 20180426
  Receipt Date: 20180426
  Transmission Date: 20180711
  Serious: No
  Sender: FDA-Public Use
  Company Number: US-LUNDBECK-DKLU2047740

PATIENT
  Age: 51 Year
  Sex: Female

DRUGS (1)
  1. NORTHERA [Suspect]
     Active Substance: DROXIDOPA
     Indication: PRODUCT USED FOR UNKNOWN INDICATION
     Dosage: 48 HR. TITRATION
     Route: 048
     Dates: start: 20180329, end: 20180420

REACTIONS (1)
  - Blood pressure increased [Recovered/Resolved]

NARRATIVE: CASE EVENT DATE: 20180420
